FAERS Safety Report 17735856 (Version 3)
Quarter: 2020Q2

REPORT INFORMATION
  Report Type: Spontaneous
  Country: JP (occurrence: JP)
  Receive Date: 20200501
  Receipt Date: 20200527
  Transmission Date: 20200714
  Serious: Yes (Other)
  Sender: FDA-Public Use
  Company Number: JP-FERRINGPH-2020FE02842

PATIENT
  Age: 9 Decade
  Sex: Male

DRUGS (2)
  1. GONAX [Suspect]
     Active Substance: DEGARELIX
     Indication: PROSTATE CANCER
     Dosage: 80 MG, EVERY 4 WEEKS
     Route: 058
     Dates: start: 20200124
  2. CASODEX [Concomitant]
     Active Substance: BICALUTAMIDE
     Dosage: UNK
     Route: 048
     Dates: start: 20200221

REACTIONS (3)
  - Prescribed underdose [Unknown]
  - Lymphocytic leukaemia [Not Recovered/Not Resolved]
  - Off label use [Unknown]

NARRATIVE: CASE EVENT DATE: 20200124
